FAERS Safety Report 14862905 (Version 1)
Quarter: 2018Q2

REPORT INFORMATION
  Report Type: Spontaneous
  Country: US (occurrence: US)
  Receive Date: 20180423
  Receipt Date: 20180423
  Transmission Date: 20180711
  Serious: Yes (Disabling)
  Sender: FDA-Public Use
  Company Number: None

PATIENT
  Age: 18 Year
  Sex: Female
  Weight: 49.5 kg

DRUGS (6)
  1. VITAMIN B12 [Concomitant]
     Active Substance: CYANOCOBALAMIN
  2. RIZATRIPTAN. [Concomitant]
     Active Substance: RIZATRIPTAN
  3. VITAMIN D [Concomitant]
     Active Substance: CHOLECALCIFEROL
  4. MINOCYCLINE [Suspect]
     Active Substance: MINOCYCLINE\MINOCYCLINE HYDROCHLORIDE
     Indication: ACNE
     Dosage: ?          QUANTITY:1 CAPSULE(S);?
     Route: 048
  5. GABAPENTIN. [Concomitant]
     Active Substance: GABAPENTIN
  6. JUNEL FE24 [Concomitant]

REACTIONS (7)
  - Systemic lupus erythematosus [None]
  - Joint swelling [None]
  - Feeling abnormal [None]
  - Abdominal pain upper [None]
  - Myalgia [None]
  - Arthralgia [None]
  - Pyrexia [None]

NARRATIVE: CASE EVENT DATE: 20180120
